FAERS Safety Report 5542180-0 (Version None)
Quarter: 2007Q4

REPORT INFORMATION
  Report Type: 
  Country: None (occurrence: None)
  Receive Date: 20071129
  Receipt Date: 20070529
  Transmission Date: 20080405
  Serious: Yes (Other)
  Sender: FDA-Public Use
  Company Number: US200704002698

PATIENT
  Age: 27 Year
  Sex: Male
  Weight: 101.1 kg

DRUGS (3)
  1. ZYPREXA [Suspect]
     Dosage: 15 MG ; 30 MG
     Dates: start: 20030101, end: 20060101
  2. LITHIUM CARBONATE [Concomitant]
  3. ZOLOFT [Concomitant]

REACTIONS (7)
  - DIABETES MELLITUS [None]
  - DIABETIC COMA [None]
  - DIABETIC KETOACIDOSIS [None]
  - GLYCOSURIA [None]
  - HYPERGLYCAEMIA [None]
  - OVERDOSE [None]
  - PANCREATITIS [None]
